FAERS Safety Report 7711123-3 (Version None)
Quarter: 2011Q3

REPORT INFORMATION
  Report Type: 
  Country: None (occurrence: None)
  Receive Date: 20110826
  Receipt Date: 20110815
  Transmission Date: 20111222
  Serious: No
  Sender: FDA-Public Use
  Company Number: US-BIOGENIDEC-2010BI021581

PATIENT
  Sex: Male

DRUGS (4)
  1. TYSABRI [Suspect]
     Indication: MULTIPLE SCLEROSIS
     Route: 042
  2. COPAXONE [Concomitant]
     Indication: MULTIPLE SCLEROSIS
  3. AVONEX [Concomitant]
     Route: 030
     Dates: start: 20091201
  4. BETASERON [Concomitant]
     Indication: MULTIPLE SCLEROSIS

REACTIONS (19)
  - HYPERHIDROSIS [None]
  - LACERATION [None]
  - DYSARTHRIA [None]
  - COUGH [None]
  - LUNG INFECTION [None]
  - PAIN IN EXTREMITY [None]
  - MEMORY IMPAIRMENT [None]
  - ASTHENIA [None]
  - FATIGUE [None]
  - DECREASED IMMUNE RESPONSIVENESS [None]
  - DEPRESSION SUICIDAL [None]
  - MUSCULOSKELETAL DISORDER [None]
  - MIGRAINE [None]
  - IMPAIRED HEALING [None]
  - DIARRHOEA [None]
  - RIB FRACTURE [None]
  - SKIN LESION [None]
  - INFLUENZA LIKE ILLNESS [None]
  - MULTIPLE SCLEROSIS RELAPSE [None]
